FAERS Safety Report 7902063-5 (Version None)
Quarter: 2011Q4

REPORT INFORMATION
  Report Type: 
  Country: None (occurrence: None)
  Receive Date: 20111108
  Receipt Date: 20111031
  Transmission Date: 20120403
  Serious: Yes (Other)
  Sender: FDA-Public Use
  Company Number: NL-GLAXOSMITHKLINE-B0760960A

PATIENT
  Sex: Male
  Weight: 100 kg

DRUGS (4)
  1. DALMADORM [Suspect]
     Route: 048
     Dates: start: 19820101, end: 19830101
  2. PAROXETINE HCL [Suspect]
     Indication: PRODUCT USED FOR UNKNOWN INDICATION
     Route: 048
     Dates: start: 19820101, end: 19830101
  3. ROHYPNOL [Suspect]
     Indication: PRODUCT USED FOR UNKNOWN INDICATION
     Route: 065
     Dates: start: 19820101, end: 19830101
  4. DALMADORM [Suspect]
     Indication: PRODUCT USED FOR UNKNOWN INDICATION
     Route: 048
     Dates: start: 19820101, end: 19830101

REACTIONS (2)
  - HAIR TEXTURE ABNORMAL [None]
  - AGGRESSION [None]
